FAERS Safety Report 13578618 (Version 1)
Quarter: 2017Q2

REPORT INFORMATION
  Report Type: Spontaneous
  Country: ES (occurrence: ES)
  Receive Date: 20170524
  Receipt Date: 20170524
  Transmission Date: 20170830
  Serious: Yes (Other)
  Sender: FDA-Public Use
  Company Number: ES-009507513-1705ESP009945

PATIENT
  Age: 62 Year
  Sex: Male
  Weight: 78 kg

DRUGS (5)
  1. ORVATEZ 10 MG/40 MG COMPRIMIDOS RECUBIERTOS CON PELICULA [Suspect]
     Active Substance: ATORVASTATIN CALCIUM\EZETIMIBE
     Indication: ISCHAEMIC HEART DISEASE PROPHYLAXIS
     Dosage: 10/40 MG (1 IN 1 D)
     Route: 048
     Dates: start: 20160908, end: 20170510
  2. BRILIQUE [Suspect]
     Active Substance: TICAGRELOR
     Indication: ISCHAEMIC HEART DISEASE PROPHYLAXIS
     Dosage: 180 MG, (1 IN 12 HR)
     Route: 048
     Dates: start: 20160908, end: 20170510
  3. ADIRO [Suspect]
     Active Substance: ASPIRIN
     Indication: ISCHAEMIC HEART DISEASE PROPHYLAXIS
     Dosage: 100 MG, 1 IN 1 D
     Route: 048
     Dates: start: 20160908
  4. EMCONCOR [Suspect]
     Active Substance: BISOPROLOL FUMARATE
     Indication: ISCHAEMIC HEART DISEASE PROPHYLAXIS
     Dosage: 2.5 MG, 1 IN 1 DAY|
     Route: 048
     Dates: start: 20160908, end: 20170510
  5. ORFIDAL [Concomitant]
     Active Substance: LORAZEPAM
     Indication: INSOMNIA
     Dosage: 1 MG, (1 IN 1 D)
     Route: 048

REACTIONS (5)
  - Arthralgia [Recovering/Resolving]
  - Fatigue [Recovering/Resolving]
  - Gynaecomastia [Recovering/Resolving]
  - Haematoma [Recovering/Resolving]
  - Choking sensation [Recovering/Resolving]

NARRATIVE: CASE EVENT DATE: 20170117
